FAERS Safety Report 13181377 (Version 2)
Quarter: 2017Q1

REPORT INFORMATION
  Report Type: Spontaneous
  Country: JP (occurrence: JP)
  Receive Date: 20170202
  Receipt Date: 20170214
  Transmission Date: 20170428
  Serious: Yes (Other)
  Sender: FDA-Public Use
  Company Number: JP-ELI_LILLY_AND_COMPANY-JP201701010339

PATIENT
  Age: 73 Year
  Sex: Female

DRUGS (2)
  1. INSULIN GLARGINE [Suspect]
     Active Substance: INSULIN GLARGINE
     Indication: PANCREATOGENOUS DIABETES
  2. INSULIN ASPART [Concomitant]
     Active Substance: INSULIN ASPART
     Indication: PANCREATOGENOUS DIABETES

REACTIONS (3)
  - Hypoglycaemia [Recovered/Resolved]
  - Intentional overdose [Unknown]
  - Suicide attempt [Unknown]
